FAERS Safety Report 21479991 (Version 1)
Quarter: 2022Q4

REPORT INFORMATION
  Report Type: Report from Study
  Country: US (occurrence: None)
  Receive Date: 20221019
  Receipt Date: 20221019
  Transmission Date: 20230112
  Serious: Yes (Other)
  Sender: FDA-Public Use
  Company Number: 2022A345657

PATIENT
  Sex: Male
  Weight: 67.1 kg

DRUGS (1)
  1. CALQUENCE [Suspect]
     Active Substance: ACALABRUTINIB
     Indication: Chronic lymphocytic leukaemia
     Route: 048
     Dates: start: 20220722

REACTIONS (4)
  - Blood glucose increased [Unknown]
  - Renal impairment [Unknown]
  - White blood cell count abnormal [Unknown]
  - Restless legs syndrome [Unknown]
